FAERS Safety Report 9019642 (Version 1)
Quarter: 2013Q1

REPORT INFORMATION
  Report Type: Spontaneous
  Country: US (occurrence: US)
  Receive Date: 20130118
  Receipt Date: 20130118
  Transmission Date: 20140127
  Serious: No
  Sender: FDA-Public Use
  Company Number: US-BRISTOL-MYERS SQUIBB COMPANY-16819518

PATIENT
  Age: 20 Year
  Sex: Female
  Weight: 46 kg

DRUGS (1)
  1. ABILIFY ORAL SOLUTION [Suspect]
     Indication: AUTISM
     Dosage: TAKING FOR PAST 2 YRS.2ND REFILL BOTTLE TASTE ALSO HORRIBLE,FROM THE NEW PHARMACY TASTE NORMAL
     Route: 048

REACTIONS (3)
  - Dysgeusia [Unknown]
  - Anxiety [Recovering/Resolving]
  - Autism [Recovering/Resolving]
